FAERS Safety Report 14645956 (Version 2)
Quarter: 2018Q2

REPORT INFORMATION
  Report Type: Spontaneous
  Country: US (occurrence: US)
  Receive Date: 20180316
  Receipt Date: 20180420
  Transmission Date: 20180711
  Serious: Yes (Other)
  Sender: FDA-Public Use
  Company Number: US-009507513-1803USA004259

PATIENT
  Age: 22 Year
  Sex: Female
  Weight: 61.68 kg

DRUGS (2)
  1. NEXPLANON [Suspect]
     Active Substance: ETONOGESTREL
     Indication: CONTRACEPTION
     Dosage: 1 ROD / 3 YEARS
     Route: 058
     Dates: start: 2015, end: 20180306
  2. NEXPLANON [Suspect]
     Active Substance: ETONOGESTREL
     Dosage: 1 ROD / 3 YEARS
     Route: 059
     Dates: start: 20180306

REACTIONS (15)
  - Device deployment issue [Recovered/Resolved]
  - Implant site bruising [Recovered/Resolved]
  - Complication associated with device [Recovered/Resolved]
  - Drug prescribing error [Unknown]
  - Incorrect drug administration duration [Recovered/Resolved]
  - Implant site pain [Recovered/Resolved]
  - Surgery [Unknown]
  - Device difficult to use [Recovered/Resolved]
  - Product administered at inappropriate site [Unknown]
  - Muscle suture [Unknown]
  - No adverse event [Unknown]
  - General anaesthesia [Unknown]
  - Complication of device removal [Recovered/Resolved]
  - Complication associated with device [Recovered/Resolved]
  - Complication of device removal [Recovered/Resolved]

NARRATIVE: CASE EVENT DATE: 2015
